FAERS Safety Report 19003007 (Version 2)
Quarter: 2021Q3

REPORT INFORMATION
  Report Type: Spontaneous
  Country: US (occurrence: US)
  Receive Date: 20210312
  Receipt Date: 20210701
  Transmission Date: 20211014
  Serious: Yes (Life-Threatening, Disabling)
  Sender: FDA-Public Use
  Company Number: US-AMERICAN REGENT INC-2021000602

PATIENT
  Age: 45 Year
  Sex: Female
  Weight: 35.1 kg

DRUGS (17)
  1. INJECTAFER [Suspect]
     Active Substance: FERRIC CARBOXYMALTOSE
     Dosage: 275 MILLIGRAM IN NS 250 ML (PLANNED)
     Route: 042
     Dates: start: 20200421, end: 20200421
  2. INJECTAFER [Suspect]
     Active Substance: FERRIC CARBOXYMALTOSE
     Dosage: 525 MILLIGRAM IN NS 250 ML (PLANNED)
     Route: 042
     Dates: start: 20180724, end: 20180724
  3. INJECTAFER [Suspect]
     Active Substance: FERRIC CARBOXYMALTOSE
     Dosage: 525 MILLIGRAM IN NS 250 ML (PLANNED)
     Route: 042
     Dates: start: 20180818, end: 20180818
  4. VITAMIN C [Concomitant]
     Active Substance: ASCORBIC ACID
     Indication: PRODUCT USED FOR UNKNOWN INDICATION
     Dosage: 500 MILLIGRAM, QD
     Route: 048
  5. INJECTAFER [Suspect]
     Active Substance: FERRIC CARBOXYMALTOSE
     Dosage: 525 MILLIGRAM IN NS 250 ML (PLANNED)
     Route: 042
     Dates: start: 20191028, end: 20191028
  6. QVAR [Concomitant]
     Active Substance: BECLOMETHASONE DIPROPIONATE
     Indication: ASTHMA
     Dosage: INHALE 2 PUFFS INTO THE LUNGS DAILY
  7. INJECTAFER [Suspect]
     Active Substance: FERRIC CARBOXYMALTOSE
     Indication: ANAEMIA
     Dosage: 525 MILLIGRAM IN NS 250 ML (STARTED)
     Route: 042
     Dates: start: 20180111, end: 20180111
  8. ALKA?SELTZER ORIGINAL [Concomitant]
     Active Substance: ANHYDROUS CITRIC ACID\ASPIRIN\SODIUM BICARBONATE
     Indication: PRODUCT USED FOR UNKNOWN INDICATION
     Dosage: UNK
     Route: 048
  9. INJECTAFER [Suspect]
     Active Substance: FERRIC CARBOXYMALTOSE
     Dosage: 525 MILLIGRAM IN NS 250 ML (STARTED)
     Route: 042
     Dates: start: 20190415, end: 20190415
  10. ALBUTEROL HFA [Concomitant]
     Active Substance: ALBUTEROL SULFATE
     Indication: PRODUCT USED FOR UNKNOWN INDICATION
     Dosage: INHALE 1?2 PUFFS INTO THE LUNGS EVERY 4 HOURS
  11. ARNICA                             /01006901/ [Concomitant]
     Active Substance: ARNICA MONTANA\HERBALS\HOMEOPATHICS
     Indication: PRODUCT USED FOR UNKNOWN INDICATION
     Dosage: UNK
     Route: 065
  12. INJECTAFER [Suspect]
     Active Substance: FERRIC CARBOXYMALTOSE
     Dosage: 525 MILLIGRAM IN NS 250 ML (PLANNED)
     Route: 042
     Dates: start: 20180717, end: 20180717
  13. INJECTAFER [Suspect]
     Active Substance: FERRIC CARBOXYMALTOSE
     Dosage: 525 MILLIGRAM IN NS 250 ML (PLANNED)
     Route: 042
     Dates: start: 20180825, end: 20180825
  14. INJECTAFER [Suspect]
     Active Substance: FERRIC CARBOXYMALTOSE
     Dosage: 525 MILLIGRAM IN NS 250 ML (PLANNED)
     Route: 042
     Dates: start: 20190423, end: 20190423
  15. INJECTAFER [Suspect]
     Active Substance: FERRIC CARBOXYMALTOSE
     Dosage: 275 MILLIGRAM IN NS 250 ML (STARTED)
     Route: 042
     Dates: start: 20191122, end: 20191122
  16. INJECTAFER [Suspect]
     Active Substance: FERRIC CARBOXYMALTOSE
     Indication: IRON DEFICIENCY ANAEMIA
     Dosage: 525 MILLIGRAM IN NS 250 ML (STARTED)
     Dates: start: 20180118, end: 20180118
  17. INJECTAFER [Suspect]
     Active Substance: FERRIC CARBOXYMALTOSE
     Dosage: UNK

REACTIONS (16)
  - Hypophosphataemia [Recovering/Resolving]
  - Tarsal tunnel syndrome [Not Recovered/Not Resolved]
  - Pain in extremity [Not Recovered/Not Resolved]
  - Product quality issue [Unknown]
  - Myalgia [Not Recovered/Not Resolved]
  - Joint laxity [Not Recovered/Not Resolved]
  - Pain [Not Recovered/Not Resolved]
  - Headache [Not Recovered/Not Resolved]
  - Multiple fractures [Not Recovered/Not Resolved]
  - Osteomalacia [Not Recovered/Not Resolved]
  - Stress fracture [Not Recovered/Not Resolved]
  - Musculoskeletal chest pain [Not Recovered/Not Resolved]
  - Arthralgia [Not Recovered/Not Resolved]
  - Emotional distress [Not Recovered/Not Resolved]
  - Anhedonia [Not Recovered/Not Resolved]
  - Anxiety [Not Recovered/Not Resolved]

NARRATIVE: CASE EVENT DATE: 2018
